FAERS Safety Report 9222431 (Version 1)
Quarter: 2013Q1

REPORT INFORMATION
  Report Type: Spontaneous
  Country: US (occurrence: None)
  Receive Date: 20120914
  Receipt Date: 20120914
  Transmission Date: 20140127
  Serious: Yes (Other)
  Sender: FDA-Public Use
  Company Number: JPI-P-021897

PATIENT
  Age: 34 Year
  Sex: Female
  Weight: 70.31 kg

DRUGS (2)
  1. XYREM (500 MILLIGRAM/MILLILITERS, SOLUTION) (SODIUM OXYBATE) [Suspect]
     Indication: CATAPLEXY
     Route: 048
     Dates: start: 20120518
  2. MULTIPLE UNSPECIFIED MEDICATIONS [Concomitant]

REACTIONS (7)
  - Weight decreased [None]
  - Aphasia [None]
  - Cataplexy [None]
  - Condition aggravated [None]
  - Thinking abnormal [None]
  - Headache [None]
  - Decreased appetite [None]
